FAERS Safety Report 9527426 (Version 1)
Quarter: 2013Q3

REPORT INFORMATION
  Report Type: Spontaneous
  Country: GB (occurrence: GB)
  Receive Date: 20130917
  Receipt Date: 20130917
  Transmission Date: 20140515
  Serious: Yes (Other)
  Sender: FDA-Public Use
  Company Number: GB-AMGEN-GBRSP2013063514

PATIENT
  Age: 62 Year
  Sex: Female

DRUGS (2)
  1. PROLIA [Suspect]
     Indication: OSTEOPOROSIS
     Dosage: 60 MG, Q6MO
     Route: 065
     Dates: start: 20130227
  2. ENBREL [Concomitant]
     Dosage: 225 MG, 2 TIMES/WK
     Dates: start: 20050601

REACTIONS (8)
  - Rheumatoid arthritis [Unknown]
  - Mouth ulceration [Unknown]
  - Throat tightness [Unknown]
  - Cough [Unknown]
  - Rash pruritic [Unknown]
  - White blood cell count decreased [Unknown]
  - Malaise [Unknown]
  - Fatigue [Unknown]
